FAERS Safety Report 7765435-8 (Version None)
Quarter: 2011Q3

REPORT INFORMATION
  Report Type: 
  Country: None (occurrence: None)
  Receive Date: 20110921
  Receipt Date: 20110912
  Transmission Date: 20111222
  Serious: Yes (Other)
  Sender: FDA-Public Use
  Company Number: US-BRISTOL-MYERS SQUIBB COMPANY-16038465

PATIENT
  Age: 41 Year
  Sex: Female
  Weight: 45 kg

DRUGS (3)
  1. CYMBALTA [Concomitant]
  2. ESTROGEN PATCH [Concomitant]
  3. KENALOG-40 [Suspect]
     Dates: start: 20110428

REACTIONS (11)
  - PAIN [None]
  - NIGHT SWEATS [None]
  - MOOD SWINGS [None]
  - INSOMNIA [None]
  - MUSCLE SPASMS [None]
  - INCREASED APPETITE [None]
  - INJECTION SITE REACTION [None]
  - MELAENA [None]
  - SKIN DISCOLOURATION [None]
  - MYALGIA [None]
  - MUSCLE ATROPHY [None]
